FAERS Safety Report 4415782-2 (Version None)
Quarter: 2004Q2

REPORT INFORMATION
  Report Type: 
  Country: None (occurrence: None)
  Receive Date: 20040618
  Receipt Date: 20040413
  Transmission Date: 20050107
  Serious: Yes (Life-Threatening, Hospitalization)
  Sender: FDA-Public Use
  Company Number: NSADSS2002030278

PATIENT
  Age: 36 Year
  Sex: Female
  Weight: 63.05 kg

DRUGS (1)
  1. ORTHO EVRA [Suspect]
     Dosage: 3 IN 4 WEEK, TRANSDERMAL
     Route: 062
     Dates: start: 20020701

REACTIONS (1)
  - PULMONARY EMBOLISM [None]
